FAERS Safety Report 22125334 (Version 1)
Quarter: 2023Q1

REPORT INFORMATION
  Report Type: Report from Study
  Country: CA (occurrence: CA)
  Receive Date: 20230322
  Receipt Date: 20230322
  Transmission Date: 20230417
  Serious: Yes (Other)
  Sender: FDA-Public Use
  Company Number: CA-JNJFOC-20221158704

PATIENT
  Age: 32 Year
  Sex: Female
  Weight: 80 kg

DRUGS (3)
  1. REMICADE [Suspect]
     Active Substance: INFLIXIMAB
     Indication: Crohn^s disease
     Route: 042
     Dates: start: 20130104
  2. REMICADE [Suspect]
     Active Substance: INFLIXIMAB
     Dosage: 10MG/KG
     Route: 042
  3. PREDNISONE [Suspect]
     Active Substance: PREDNISONE
     Indication: Crohn^s disease
     Dosage: FASTER TAPERING
     Route: 065

REACTIONS (6)
  - Crohn^s disease [Unknown]
  - COVID-19 [Recovering/Resolving]
  - Tachycardia [Unknown]
  - Fibrin D dimer increased [Recovering/Resolving]
  - Dyspnoea [Unknown]
  - Off label use [Unknown]

NARRATIVE: CASE EVENT DATE: 20130104
